FAERS Safety Report 12572981 (Version 4)
Quarter: 2016Q3

REPORT INFORMATION
  Report Type: Report from Study
  Country: US (occurrence: US)
  Receive Date: 20160720
  Receipt Date: 20160908
  Transmission Date: 20161109
  Serious: Yes (Hospitalization)
  Sender: FDA-Public Use
  Company Number: US-GILEAD-2016-0221502

PATIENT
  Age: 35 Year
  Sex: Female
  Weight: 55.78 kg

DRUGS (23)
  1. LEXAPRO [Concomitant]
     Active Substance: ESCITALOPRAM OXALATE
  2. REMODULIN [Suspect]
     Active Substance: TREPROSTINIL
     Indication: PULMONARY ARTERIAL HYPERTENSION
     Dosage: 0.073 UG/KG, UNK
     Route: 058
     Dates: start: 20150123
  3. SILDENAFIL. [Concomitant]
     Active Substance: SILDENAFIL
  4. ZYRTEC [Concomitant]
     Active Substance: CETIRIZINE HYDROCHLORIDE
  5. DIGOX                              /00017701/ [Concomitant]
  6. PRILOSEC [Concomitant]
     Active Substance: OMEPRAZOLE MAGNESIUM
  7. ZOFRAN [Concomitant]
     Active Substance: ONDANSETRON HYDROCHLORIDE
  8. ALDACTONE [Concomitant]
     Active Substance: SPIRONOLACTONE
  9. LASIX [Concomitant]
     Active Substance: FUROSEMIDE
  10. WARFARIN [Concomitant]
     Active Substance: WARFARIN
  11. CIALIS [Concomitant]
     Active Substance: TADALAFIL
  12. ULTRAM [Concomitant]
     Active Substance: TRAMADOL HYDROCHLORIDE
  13. ADCIRCA [Concomitant]
     Active Substance: TADALAFIL
  14. AMBRISENTAN [Suspect]
     Active Substance: AMBRISENTAN
     Indication: PULMONARY HYPERTENSION
     Dosage: 10 MG, QD
     Route: 048
     Dates: start: 20141215
  15. VITAMIN C [Concomitant]
     Active Substance: ASCORBIC ACID
  16. TYLENOL [Concomitant]
     Active Substance: ACETAMINOPHEN
  17. NEURONTIN [Concomitant]
     Active Substance: GABAPENTIN
  18. CLARITIN [Concomitant]
     Active Substance: LORATADINE
  19. KLOR-CON [Concomitant]
     Active Substance: POTASSIUM CHLORIDE
  20. SARNA (CAMPHOR (NATURAL)\MENTHOL) [Concomitant]
     Active Substance: CAMPHOR (NATURAL)\MENTHOL
  21. KEFLEX [Concomitant]
     Active Substance: CEPHALEXIN
  22. IRON                               /00023503/ [Concomitant]
     Active Substance: IRON
  23. HYDROCORTISONE. [Concomitant]
     Active Substance: HYDROCORTISONE

REACTIONS (6)
  - Infusion site pain [Unknown]
  - Infusion site vesicles [Recovering/Resolving]
  - Infusion site swelling [Recovering/Resolving]
  - Infusion site infection [Recovered/Resolved]
  - Skin discolouration [Unknown]
  - Infusion site rash [Unknown]

NARRATIVE: CASE EVENT DATE: 201608
